FAERS Safety Report 23240744 (Version 1)
Quarter: 2023Q4

REPORT INFORMATION
  Report Type: Spontaneous
  Country: US (occurrence: US)
  Receive Date: 20231129
  Receipt Date: 20231129
  Transmission Date: 20240109
  Serious: Yes (Hospitalization, Other)
  Sender: FDA-Public Use
  Company Number: US-009507513-2206USA008293

PATIENT
  Age: 74 Year
  Sex: Male
  Weight: 79.9 kg

DRUGS (6)
  1. KEYTRUDA [Suspect]
     Active Substance: PEMBROLIZUMAB
     Indication: Squamous cell carcinoma of skin
     Dosage: 200 MILLIGRAM, Q3W
     Route: 042
     Dates: start: 20220112, end: 20220505
  2. LINAVONKIBART [Suspect]
     Active Substance: LINAVONKIBART
     Indication: Squamous cell carcinoma of skin
     Dosage: 2400 MG, Q3W
     Route: 042
     Dates: start: 20220112, end: 20220505
  3. LINAVONKIBART [Suspect]
     Active Substance: LINAVONKIBART
     Dosage: 1600 MG, Q3W
     Route: 042
     Dates: start: 20220505, end: 20220505
  4. AMMONIUM LACTATE [Concomitant]
     Active Substance: AMMONIUM LACTATE
     Dosage: UNK
     Dates: start: 20220311
  5. TRIAMCINOLONE ACETONIDE [Concomitant]
     Active Substance: TRIAMCINOLONE ACETONIDE
     Dosage: UNK
     Dates: start: 20220404, end: 20220523
  6. DUPIXENT [Concomitant]
     Active Substance: DUPILUMAB

REACTIONS (3)
  - Blister [Not Recovered/Not Resolved]
  - Rash [Recovered/Resolved]
  - Pruritus [Recovered/Resolved]

NARRATIVE: CASE EVENT DATE: 20220519
